FAERS Safety Report 4586379-9 (Version None)
Quarter: 2005Q1

REPORT INFORMATION
  Report Type: 
  Country: None (occurrence: None)
  Receive Date: 20050125
  Receipt Date: 20040908
  Transmission Date: 20050727
  Serious: No
  Sender: FDA-Public Use
  Company Number: USA040977750

PATIENT
  Age: 57 Year
  Sex: Female

DRUGS (2)
  1. FORTEO [Suspect]
     Indication: OSTEOPOROSIS
     Dates: start: 20040801, end: 20040906
  2. CELLCEPT [Concomitant]

REACTIONS (6)
  - DIZZINESS [None]
  - HEART RATE INCREASED [None]
  - MIGRAINE [None]
  - MUSCLE SPASMS [None]
  - RASH PAPULAR [None]
  - RESPIRATORY TRACT CONGESTION [None]
